FAERS Safety Report 4313870-2 (Version None)
Quarter: 2004Q1

REPORT INFORMATION
  Report Type: 
  Country: None (occurrence: None)
  Receive Date: 20040302
  Receipt Date: 20031202
  Transmission Date: 20041129
  Serious: Yes (Other)
  Sender: FDA-Public Use
  Company Number: WAES 0312USA00323

PATIENT
  Age: 64 Year
  Sex: Female

DRUGS (17)
  1. CANCIDAS [Suspect]
     Dosage: IV
     Route: 042
     Dates: start: 20031201
  2. ATIVAN [Concomitant]
  3. DECADRON [Concomitant]
  4. DIFLUCAN [Concomitant]
  5. DURAGESIC [Concomitant]
  6. INDERAL [Concomitant]
  7. LASIX [Concomitant]
  8. MARINOL [Concomitant]
  9. MOTRIN [Concomitant]
  10. PHENERGAN (DIBROMOPROPAMIDINE) [Concomitant]
  11. PRIMAXIN [Concomitant]
  12. PROTONIX [Concomitant]
  13. ROXANOL [Concomitant]
  14. TYLENOL (CAPLET) [Concomitant]
  15. XANAX [Concomitant]
  16. ZOVIRAX [Concomitant]
  17. VANCOMYCIN HYDROCHLORIDE [Concomitant]

REACTIONS (1)
  - PLATELET COUNT DECREASED [None]
